FAERS Safety Report 6768379-3 (Version None)
Quarter: 2010Q2

REPORT INFORMATION
  Report Type: 
  Country: None (occurrence: None)
  Receive Date: 20100614
  Receipt Date: 20100531
  Transmission Date: 20101027
  Serious: Yes (Hospitalization)
  Sender: FDA-Public Use
  Company Number: PHBS2007AR17911

PATIENT
  Age: 32 Year
  Sex: Female

DRUGS (4)
  1. BASOFORTINA [Suspect]
     Route: 065
  2. ORAL CONTRACEPTIVE NOS [Concomitant]
     Dosage: 1 BOX AT ONCE
     Route: 048
  3. AMPICILLIN [Concomitant]
  4. ASPIRIN [Concomitant]

REACTIONS (9)
  - ANAEMIA [None]
  - BLOOD URIC ACID INCREASED [None]
  - DRUG EXPOSURE DURING PREGNANCY [None]
  - HAEMATOCRIT DECREASED [None]
  - LETHARGY [None]
  - MALNUTRITION [None]
  - RENAL DISORDER [None]
  - TUBULOINTERSTITIAL NEPHRITIS [None]
  - URINARY TRACT INFECTION [None]
